FAERS Safety Report 6516405-9 (Version None)
Quarter: 2009Q4

REPORT INFORMATION
  Report Type: 
  Country: None (occurrence: None)
  Receive Date: 20091223
  Receipt Date: 20091217
  Transmission Date: 20100525
  Serious: Yes (Hospitalization)
  Sender: FDA-Public Use
  Company Number: B0608204A

PATIENT
  Sex: Female

DRUGS (7)
  1. WELLBUTRIN SR [Suspect]
     Indication: DEPRESSION
     Dosage: 150MG PER DAY
     Route: 048
     Dates: start: 20030903
  2. ATIVAN [Concomitant]
     Dates: start: 20030903, end: 20031011
  3. GASMOTIN [Concomitant]
     Dates: start: 20030903, end: 20031011
  4. TRIDOL [Concomitant]
     Dates: start: 20030903, end: 20031011
  5. AMITRIPTYLINE [Concomitant]
     Dates: start: 20030903, end: 20031011
  6. NORVASC [Concomitant]
     Dates: start: 20030903, end: 20031011
  7. HYDROCHLOROTHIAZIDE [Concomitant]
     Dates: start: 20030903, end: 20031011

REACTIONS (1)
  - SOMATOFORM DISORDER [None]
